FAERS Safety Report 9783832 (Version 2)
Quarter: 2014Q1

REPORT INFORMATION
  Report Type: Spontaneous
  Country: US (occurrence: US)
  Receive Date: 20131226
  Receipt Date: 20140213
  Transmission Date: 20141002
  Serious: No
  Sender: FDA-Public Use
  Company Number: US-PFIZER INC-2013365359

PATIENT
  Age: 47 Year
  Sex: Male
  Weight: 120 kg

DRUGS (11)
  1. ADVIL [Suspect]
     Indication: HEADACHE
     Dosage: UNK, AS NEEDED
     Dates: end: 20131218
  2. ADVIL [Suspect]
     Indication: MUSCULOSKELETAL PAIN
  3. LOSARTAN POTASSIUM [Concomitant]
     Dosage: 10 MG, DAILY
  4. METFORMIN HYDROCHLORIDE [Concomitant]
     Dosage: 10 MG, 2 TIMES A DAY
  5. HYDROCHLOROTHIAZIDE [Concomitant]
     Dosage: 25 MG, DAILY
  6. SIMVASTATIN [Concomitant]
     Dosage: 40 MG, ONCE DAILY (AT NIGHT)
     Route: 048
  7. GLIPIZIDE [Concomitant]
     Dosage: 10 MG (5MG X 2), 2 TIMES A DAY
  8. CINNAMON [Concomitant]
     Dosage: 2000 MG, DAILY
  9. COLACE [Concomitant]
     Dosage: 100 MG, 2 TIMES A DAY
  10. PERI-COLACE [Concomitant]
     Dosage: UNK
  11. ASPIRIN [Concomitant]
     Indication: CARDIAC DISORDER
     Dosage: 81 MG, DAILY

REACTIONS (3)
  - Poor quality drug administered [Unknown]
  - Hypoaesthesia oral [Unknown]
  - Product physical issue [Unknown]
